FAERS Safety Report 8007005-2 (Version None)
Quarter: 2011Q4

REPORT INFORMATION
  Report Type: 
  Country: None (occurrence: None)
  Receive Date: 20111227
  Receipt Date: 20111219
  Transmission Date: 20120403
  Serious: Yes (Other)
  Sender: FDA-Public Use
  Company Number: US-JNJFOC-20111208939

PATIENT
  Age: 59 Year
  Sex: Male

DRUGS (2)
  1. SPORANOX [Suspect]
     Indication: CANDIDIASIS
     Route: 065
  2. SPORANOX [Suspect]
     Dosage: ONCE A MONTH FOR 3 MONTHS
     Route: 065

REACTIONS (2)
  - NIGHTMARE [None]
  - DEPRESSION [None]
